FAERS Safety Report 9874292 (Version 2)
Quarter: 2014Q1

REPORT INFORMATION
  Report Type: Other
  Country: US (occurrence: US)
  Receive Date: 20140206
  Receipt Date: 20140206
  Transmission Date: 20141002
  Serious: No
  Sender: FDA-Public Use
  Company Number: US-ACORDA-ACO_34761_2013

PATIENT
  Sex: Male
  Weight: 107.48 kg

DRUGS (4)
  1. AMPYRA [Suspect]
     Indication: GAIT DISTURBANCE
     Dosage: 10 MG, BID
     Route: 048
     Dates: start: 201006, end: 2011
  2. COPAXONE [Concomitant]
     Indication: MULTIPLE SCLEROSIS
     Dosage: 20 MG, QD
     Route: 058
  3. OTHER THERAPEUTIC PRODUCTS [Concomitant]
     Indication: PRODUCT USED FOR UNKNOWN INDICATION
     Dosage: UNK
  4. PRAVASTATIN [Concomitant]
     Indication: PRODUCT USED FOR UNKNOWN INDICATION
     Dosage: 20 MG, UNK

REACTIONS (3)
  - Weight increased [Recovered/Resolved]
  - Constipation [Unknown]
  - Drug ineffective [Unknown]
